FAERS Safety Report 13035585 (Version 1)
Quarter: 2016Q4

REPORT INFORMATION
  Report Type: Spontaneous
  Country: US (occurrence: US)
  Receive Date: 20161215
  Receipt Date: 20161215
  Transmission Date: 20170207
  Serious: Yes (Death)
  Sender: FDA-Public Use
  Company Number: None

PATIENT
  Age: 64 Year
  Sex: Female
  Weight: 87.77 kg

DRUGS (1)
  1. VIDAZA [Suspect]
     Active Substance: AZACITIDINE
     Indication: PROPHYLAXIS AGAINST GRAFT VERSUS HOST DISEASE
     Dosage: 45MG/M2 DAILY INTRAVENOUS
     Route: 042

REACTIONS (5)
  - Cytopenia [None]
  - Pneumonia fungal [None]
  - Upper respiratory tract infection [None]
  - Transplant failure [None]
  - Febrile neutropenia [None]

NARRATIVE: CASE EVENT DATE: 20161010
